FAERS Safety Report 20893110 (Version 1)
Quarter: 2022Q2

REPORT INFORMATION
  Report Type: Spontaneous
  Country: US (occurrence: US)
  Receive Date: 20220531
  Receipt Date: 20220531
  Transmission Date: 20220721
  Serious: No
  Sender: FDA-Public Use
  Company Number: US-AMGEN-USASP2022087368

PATIENT
  Sex: Male

DRUGS (5)
  1. LUMAKRAS [Suspect]
     Active Substance: SOTORASIB
     Indication: Lung neoplasm malignant
     Dosage: 480 MILLIGRAM
     Route: 048
     Dates: start: 20220316
  2. CLOPIDOGREL BISULFATE [Concomitant]
     Active Substance: CLOPIDOGREL BISULFATE
     Indication: Product used for unknown indication
  3. MEGESTROL ACETATE [Concomitant]
     Active Substance: MEGESTROL ACETATE
     Indication: Product used for unknown indication
  4. ONDANSETRON [Concomitant]
     Active Substance: ONDANSETRON
     Indication: Product used for unknown indication
  5. ULTRAM [Concomitant]
     Active Substance: TRAMADOL HYDROCHLORIDE
     Indication: Product used for unknown indication

REACTIONS (1)
  - Hospice care [Not Recovered/Not Resolved]
